FAERS Safety Report 10680891 (Version 4)
Quarter: 2015Q1

REPORT INFORMATION
  Report Type: Spontaneous
  Country: US (occurrence: US)
  Receive Date: 20141229
  Receipt Date: 20150109
  Transmission Date: 20150720
  Serious: Yes (Hospitalization)
  Sender: FDA-Public Use
  Company Number: US-GILEAD-2014-0129183

PATIENT
  Age: 54 Year
  Sex: Female

DRUGS (3)
  1. LETAIRIS [Suspect]
     Active Substance: AMBRISENTAN
     Indication: PRODUCT USED FOR UNKNOWN INDICATION
     Dosage: 5 MG, QD
     Route: 065
     Dates: start: 20130328
  2. VELETRI [Concomitant]
     Active Substance: EPOPROSTENOL
  3. ADCIRCA [Concomitant]
     Active Substance: TADALAFIL

REACTIONS (11)
  - Diarrhoea [Recovering/Resolving]
  - Weight increased [Unknown]
  - Application site erythema [Unknown]
  - Application site irritation [Unknown]
  - Vomiting [Recovering/Resolving]
  - Pyrexia [Unknown]
  - Fatigue [Unknown]
  - Application site pain [Unknown]
  - Abdominal pain [Unknown]
  - Application site pruritus [Unknown]
  - Dyspnoea [Unknown]
